FAERS Safety Report 22044324 (Version 1)
Quarter: 2023Q1

REPORT INFORMATION
  Report Type: Report from Study
  Country: KR (occurrence: KR)
  Receive Date: 20230228
  Receipt Date: 20230228
  Transmission Date: 20230418
  Serious: Yes (Hospitalization, Other)
  Sender: FDA-Public Use
  Company Number: KR-GLAXOSMITHKLINE-KR2023GSK030670

PATIENT

DRUGS (7)
  1. FLUTICASONE FUROATE\UMECLIDINIUM BROMIDE\VILANTEROL TRIFENATATE [Suspect]
     Active Substance: FLUTICASONE FUROATE\UMECLIDINIUM BROMIDE\VILANTEROL TRIFENATATE
     Indication: Chronic obstructive pulmonary disease
     Dosage: UNK, QD
     Route: 055
     Dates: start: 20211021
  2. ROFLUMILAST [Concomitant]
     Active Substance: ROFLUMILAST
     Indication: Chronic obstructive pulmonary disease
     Dosage: 1, QD
     Route: 048
     Dates: start: 20210420
  3. HARNAL [Concomitant]
     Active Substance: TAMSULOSIN HYDROCHLORIDE
     Indication: Benign prostatic hyperplasia
     Dosage: 2, BID
     Route: 048
     Dates: start: 20200901
  4. BETMIGA PR [Concomitant]
     Indication: Benign prostatic hyperplasia
     Dosage: 1, QD
     Route: 048
     Dates: start: 20180517
  5. XARELTO [Concomitant]
     Active Substance: RIVAROXABAN
     Indication: Benign prostatic hyperplasia
     Dosage: 1, QD
     Route: 048
     Dates: start: 20210713
  6. FULCARD [Concomitant]
     Indication: Atrial fibrillation
     Dosage: 1, BID
     Route: 048
     Dates: start: 20210713
  7. DILTIAZEM HYDROCHLORIDE [Concomitant]
     Active Substance: DILTIAZEM HYDROCHLORIDE
     Indication: Atrial fibrillation
     Dosage: 1, BID
     Route: 048
     Dates: start: 20210713

REACTIONS (1)
  - Haematochezia [Recovered/Resolved]

NARRATIVE: CASE EVENT DATE: 20220608
